FAERS Safety Report 9619314 (Version 1)
Quarter: 2013Q4

REPORT INFORMATION
  Report Type: Spontaneous
  Country: US (occurrence: US)
  Receive Date: 20131014
  Receipt Date: 20131014
  Transmission Date: 20140711
  Serious: Yes (Other)
  Sender: FDA-Public Use
  Company Number: US-009507513-1310USA004648

PATIENT
  Sex: 0

DRUGS (2)
  1. ZOCOR [Suspect]
     Route: 048
  2. VICTOZA [Concomitant]

REACTIONS (1)
  - Pancreatitis [Unknown]
